FAERS Safety Report 9992362 (Version 1)
Quarter: 2014Q1

REPORT INFORMATION
  Report Type: Spontaneous
  Country: US (occurrence: US)
  Receive Date: 20140310
  Receipt Date: 20140310
  Transmission Date: 20141002
  Serious: Yes (Other)
  Sender: FDA-Public Use
  Company Number: US-GLAXOSMITHKLINE-A1063541A

PATIENT
  Sex: Female

DRUGS (1)
  1. WELLBUTRIN [Suspect]
     Indication: ANXIETY
     Dosage: 300MG UNKNOWN
     Route: 048

REACTIONS (2)
  - Disability [Unknown]
  - Fall [Unknown]
